FAERS Safety Report 6969030-X (Version None)
Quarter: 2010Q3

REPORT INFORMATION
  Report Type: 
  Country: None (occurrence: None)
  Receive Date: 20100902
  Receipt Date: 20100826
  Transmission Date: 20110219
  Serious: Yes (Life-Threatening, Hospitalization, Disabling)
  Sender: FDA-Public Use
  Company Number: OSCN-NO-0711S-0440

PATIENT
  Age: 67 Year
  Sex: Male
  Weight: 82 kg

DRUGS (2)
  1. OMNISCAN [Suspect]
     Indication: PRODUCT USED FOR UNKNOWN INDICATION
     Dosage: 50 ML, SINGLE DOSE, I.V., 35 ML, SINGLE DOSE, I.V.
     Route: 042
     Dates: start: 20031007, end: 20031007
  2. OMNISCAN [Suspect]
     Indication: PRODUCT USED FOR UNKNOWN INDICATION
     Dosage: 50 ML, SINGLE DOSE, I.V., 35 ML, SINGLE DOSE, I.V.
     Route: 042
     Dates: start: 20051130, end: 20051130

REACTIONS (3)
  - GAIT DISTURBANCE [None]
  - HAEMODIALYSIS [None]
  - NEPHROGENIC SYSTEMIC FIBROSIS [None]
